FAERS Safety Report 13265391 (Version 1)
Quarter: 2017Q1

REPORT INFORMATION
  Report Type: Spontaneous
  Country: DE (occurrence: DE)
  Receive Date: 20170223
  Receipt Date: 20170223
  Transmission Date: 20170428
  Serious: Yes (Other)
  Sender: FDA-Public Use
  Company Number: DE-TEVA-741105GER

PATIENT
  Age: 79 Year
  Sex: Female

DRUGS (3)
  1. BISOPROLOL [Concomitant]
     Active Substance: BISOPROLOL
  2. VALSARTAN. [Concomitant]
     Active Substance: VALSARTAN
  3. FLECAINID-RATIOPHARM? 100 MG TABLETTEN [Suspect]
     Active Substance: FLECAINIDE ACETATE
     Dosage: 200 MILLIGRAM DAILY;
     Route: 048
     Dates: start: 2016

REACTIONS (3)
  - Cardiac pacemaker insertion [Not Recovered/Not Resolved]
  - Somnolence [Not Recovered/Not Resolved]
  - Visual impairment [Not Recovered/Not Resolved]

NARRATIVE: CASE EVENT DATE: 20170119
